FAERS Safety Report 14817516 (Version 1)
Quarter: 2018Q2

REPORT INFORMATION
  Report Type: Spontaneous
  Country: US (occurrence: US)
  Receive Date: 20180426
  Receipt Date: 20180426
  Transmission Date: 20180711
  Serious: No
  Sender: FDA-Public Use
  Company Number: US-GLAXOSMITHKLINE-US2018070939

PATIENT
  Sex: Male

DRUGS (10)
  1. COREG [Suspect]
     Active Substance: CARVEDILOL
     Dosage: 6.25 MG, UNK
  2. FENTANYL TRANSDERMAL SYSTEM [Concomitant]
     Active Substance: FENTANYL
  3. VITAMIN C [Concomitant]
     Active Substance: ASCORBIC ACID
  4. RESVERATROL [Concomitant]
     Active Substance: DIETARY SUPPLEMENT\RESVERATROL
  5. VITAMIN E [Concomitant]
     Active Substance: .ALPHA.-TOCOPHEROL
  6. CRANBERRY SUPPLEMENT [Concomitant]
  7. COQ10 [Concomitant]
     Active Substance: UBIDECARENONE
  8. ENTRESTO [Concomitant]
     Active Substance: SACUBITRIL\VALSARTAN
  9. COREG [Suspect]
     Active Substance: CARVEDILOL
     Indication: ATRIAL FIBRILLATION
     Dosage: 3.125 MG, BID
     Route: 048
     Dates: start: 201104
  10. VITAMIN B COMPLETE [Concomitant]

REACTIONS (3)
  - Heart rate decreased [Recovered/Resolved]
  - Product use in unapproved indication [Unknown]
  - Medication error [Unknown]
